FAERS Safety Report 4958239-2 (Version None)
Quarter: 2006Q1

REPORT INFORMATION
  Report Type: 
  Country: None (occurrence: None)
  Receive Date: 20060330
  Receipt Date: 20060320
  Transmission Date: 20060701
  Serious: Yes (Other)
  Sender: FDA-Public Use
  Company Number: GB-GLAXOSMITHKLINE-B0416494A

PATIENT
  Age: 50 Year
  Sex: Female
  Weight: 67 kg

DRUGS (4)
  1. ONDANSETRON [Suspect]
     Indication: NAUSEA
     Dosage: 8MG CYCLIC
     Route: 042
     Dates: start: 20060302, end: 20060302
  2. ONDANSETRON [Concomitant]
     Indication: CHEMOTHERAPY
     Dosage: 8MG PER DAY
     Route: 042
     Dates: start: 20051215
  3. DEXAMETHASONE TAB [Concomitant]
     Indication: CHEMOTHERAPY
     Dosage: 8MG PER DAY
     Route: 042
     Dates: start: 20051215
  4. EPIRUBICIN [Concomitant]
     Indication: CHEMOTHERAPY
     Dosage: 155MG PER DAY
     Route: 042
     Dates: start: 20051215

REACTIONS (2)
  - INFUSION SITE ERYTHEMA [None]
  - PAIN [None]
